FAERS Safety Report 4866658-8 (Version None)
Quarter: 2005Q4

REPORT INFORMATION
  Report Type: 
  Country: None (occurrence: None)
  Receive Date: 20051221
  Receipt Date: 20051207
  Transmission Date: 20060501
  Serious: Yes (Hospitalization)
  Sender: FDA-Public Use
  Company Number: DSA_27535_2005

PATIENT
  Age: 75 Year
  Sex: Female

DRUGS (13)
  1. DILTIAZEM HCL [Suspect]
     Indication: ANGINA PECTORIS
     Dosage: 120 MG Q DAY PO
     Route: 048
     Dates: start: 20051108, end: 20051113
  2. WARFARIN [Concomitant]
  3. NICORANDIL [Concomitant]
  4. CARVEDILOL [Concomitant]
  5. ISOSORBIDE MONONITRATE [Concomitant]
  6. SIMVASTATIN [Concomitant]
  7. FUROSEMIDE [Concomitant]
  8. LOSARTAN [Concomitant]
  9. AMLODIPINE [Concomitant]
  10. SERTRALINE HCL [Concomitant]
  11. LANSOPRAZOLE [Concomitant]
  12. FYBOGEL [Concomitant]
  13. GTN-S [Concomitant]

REACTIONS (7)
  - AGGRESSION [None]
  - DIARRHOEA [None]
  - FEAR [None]
  - FEELING ABNORMAL [None]
  - HALLUCINATION [None]
  - INSOMNIA [None]
  - NIGHTMARE [None]
